FAERS Safety Report 12726969 (Version 1)
Quarter: 2016Q3

REPORT INFORMATION
  Report Type: Report from Study
  Country: US (occurrence: US)
  Receive Date: 20160909
  Receipt Date: 20160909
  Transmission Date: 20161109
  Serious: Yes (Hospitalization)
  Sender: FDA-Public Use
  Company Number: US-BIOGEN-2016BI00287191

PATIENT
  Age: 43 Year
  Sex: Female
  Weight: 45.85 kg

DRUGS (1)
  1. PLEGRIDY [Suspect]
     Active Substance: PEGINTERFERON BETA-1A
     Indication: MULTIPLE SCLEROSIS
     Route: 058
     Dates: start: 201608

REACTIONS (2)
  - Central nervous system lesion [Unknown]
  - Asthenia [Unknown]

NARRATIVE: CASE EVENT DATE: 20160815
